FAERS Safety Report 4686109-6 (Version None)
Quarter: 2005Q2

REPORT INFORMATION
  Report Type: 
  Country: None (occurrence: None)
  Receive Date: 20050609
  Receipt Date: 20050601
  Transmission Date: 20051028
  Serious: Yes (Hospitalization)
  Sender: FDA-Public Use
  Company Number: US-GLAXOSMITHKLINE-A0560708A

PATIENT
  Age: 65 Year
  Sex: Female
  Weight: 50.9 kg

DRUGS (5)
  1. ECOTRIN REGULAR STRENGTH TABLETS [Suspect]
     Indication: PROPHYLAXIS
     Route: 048
     Dates: start: 20010101
  2. CITRUCEL CAPLETS [Suspect]
     Indication: ILL-DEFINED DISORDER
     Route: 048
     Dates: start: 20040101
  3. MAXZIDE [Concomitant]
     Indication: FLUID RETENTION
     Dosage: 25MG PER DAY
     Route: 048
  4. KLONOPIN [Concomitant]
     Indication: INSOMNIA
     Dosage: 1MG PER DAY
     Route: 048
  5. TYLENOL (CAPLET) [Concomitant]
     Indication: PAIN
     Route: 048

REACTIONS (10)
  - ABDOMINAL DISTENSION [None]
  - BACK PAIN [None]
  - FIBROMYALGIA [None]
  - HYPERACUSIS [None]
  - IRRITABLE BOWEL SYNDROME [None]
  - MUSCULOSKELETAL DISORDER [None]
  - STOMACH DISCOMFORT [None]
  - TINNITUS [None]
  - VOMITING [None]
  - WEIGHT DECREASED [None]
